FAERS Safety Report 9233536 (Version 2)
Quarter: 2024Q4

REPORT INFORMATION
  Report Type: Spontaneous
  Country: ES (occurrence: ES)
  Receive Date: 20130416
  Receipt Date: 20241130
  Transmission Date: 20250115
  Serious: Yes (Congenital Anomaly, Other)
  Sender: UCB
  Company Number: ES-UCBSA-082602

PATIENT
  Sex: Male

DRUGS (4)
  1. VIMPAT [Suspect]
     Active Substance: LACOSAMIDE
     Indication: Epilepsy
     Dosage: MOTHER STARTED WITH LOW DOSE AND INCREASED UNTIL 400 MG
     Route: 064
     Dates: start: 2012, end: 201301
  2. KEPPRA [Concomitant]
     Active Substance: LEVETIRACETAM
     Indication: Epilepsy
     Route: 064
  3. ZONEGRAN [Concomitant]
     Active Substance: ZONISAMIDE
     Indication: Epilepsy
     Route: 064
  4. RIVOTRIL [Concomitant]
     Active Substance: CLONAZEPAM
     Indication: Epilepsy
     Route: 064

REACTIONS (4)
  - Congenital anomaly [Unknown]
  - Tuberous sclerosis complex [Unknown]
  - Premature baby [Unknown]
  - Maternal exposure during pregnancy [Recovered/Resolved]

NARRATIVE: CASE EVENT DATE: 20120101
